FAERS Safety Report 9188266 (Version 1)
Quarter: 2013Q1

REPORT INFORMATION
  Report Type: Spontaneous
  Country: US (occurrence: US)
  Receive Date: 20130325
  Receipt Date: 20130325
  Transmission Date: 20140127
  Serious: Yes (Other)
  Sender: FDA-Public Use
  Company Number: US-UCBSA-081138

PATIENT
  Sex: Male

DRUGS (1)
  1. KEPPRA [Suspect]
     Indication: PARTIAL SEIZURES
     Dosage: DRUG STRENGTH: 500 MG, 1.5 TABLETS, AT NIGHT

REACTIONS (2)
  - Convulsion [Unknown]
  - Drug prescribing error [Unknown]
